FAERS Safety Report 21983650 (Version 4)
Quarter: 2023Q1

REPORT INFORMATION
  Report Type: Spontaneous
  Country: US (occurrence: US)
  Receive Date: 20230213
  Receipt Date: 20230327
  Transmission Date: 20230418
  Serious: Yes (Hospitalization, Other)
  Sender: FDA-Public Use
  Company Number: US-AMGEN-USASP2023022790

PATIENT
  Age: 30 Year
  Sex: Female
  Weight: 86.168 kg

DRUGS (13)
  1. OTEZLA [Suspect]
     Active Substance: APREMILAST
     Indication: Product used for unknown indication
     Dosage: 30 MILLIGRAM, BID
     Route: 048
  2. SERTRALINE [Concomitant]
     Active Substance: SERTRALINE HYDROCHLORIDE
     Indication: Generalised anxiety disorder
     Dosage: 50 MILLIGRAM, QD
     Route: 048
     Dates: start: 20220315
  3. MODERNA COVID-19 VACCINE [Concomitant]
     Active Substance: ELASOMERAN
     Dosage: UNK
     Dates: start: 20210401
  4. TD [Concomitant]
     Active Substance: CLOSTRIDIUM TETANI TOXOID ANTIGEN (FORMALDEHYDE INACTIVATED)\CORYNEBACTERIUM DIPHTHERIAE TOXOID ANTI
     Dosage: UNK
     Dates: start: 20220702
  5. THIAMINE [Concomitant]
     Active Substance: THIAMINE
     Dosage: 100 MILLIGRAM, QD
     Route: 048
     Dates: start: 20230115
  6. FOLVITE [Concomitant]
     Active Substance: FOLIC ACID
     Dosage: 1 MILLIGRAM, QD
     Route: 048
     Dates: start: 20230115
  7. PROTONIX [Concomitant]
     Active Substance: PANTOPRAZOLE SODIUM
     Dosage: 40 MILLIGRAM, BID AT BEDTIME FOR 8 WEEKS THEN ONCE DAILY THEREAFTER
     Route: 048
     Dates: start: 20230114
  8. ZOFRAN [Concomitant]
     Active Substance: ONDANSETRON HYDROCHLORIDE
     Indication: Nausea
     Dosage: UNK, TAKE 2 TABLETS 8 MG TOTAL
     Route: 048
     Dates: start: 20230114
  9. VITAMINS [Concomitant]
     Active Substance: VITAMINS
     Dosage: UNK UNK, ONE TABLET QD
     Route: 048
     Dates: start: 20230114
  10. BETAMETHASONE DIPROPIONATE [Concomitant]
     Active Substance: BETAMETHASONE DIPROPIONATE
     Dosage: UNK, QD TOPICALLY AS NEEEDED
     Dates: start: 20220309
  11. NIZORAL [Concomitant]
     Active Substance: KETOCONAZOLE
     Dosage: UNK, Q2WK
     Dates: start: 20220309
  12. LIDEX [Concomitant]
     Active Substance: FLUOCINONIDE
     Indication: Psoriasis
     Dosage: UNK, QD, AFFECTED AREA ONCE DAILY FOR 14 DAYS AS NEEEED PER MONTH
     Dates: start: 20220309
  13. TETANUS TOXOID, REDUCED DIPHTHERIA TOXOID AND ACELLULAR PERTUSSIS VACC [Concomitant]
     Active Substance: TETANUS TOXOID, REDUCED DIPHTHERIA TOXOID AND ACELLULAR PERTUSSIS VACCINE ADSORBED, TDAP
     Dosage: UNK
     Dates: start: 20170605

REACTIONS (21)
  - Hepatic cirrhosis [Not Recovered/Not Resolved]
  - Vitamin B12 increased [Unknown]
  - Corynebacterium infection [Unknown]
  - Staphylococcal infection [Unknown]
  - Upper gastrointestinal haemorrhage [Recovered/Resolved]
  - Portal hypertensive gastropathy [Not Recovered/Not Resolved]
  - Splenomegaly [Unknown]
  - Hiatus hernia [Unknown]
  - Blood calcium decreased [Unknown]
  - Vitamin D deficiency [Unknown]
  - Gastric disorder [Unknown]
  - Oesophagitis [Not Recovered/Not Resolved]
  - Gastrointestinal disorder [Unknown]
  - Alcoholism [Not Recovered/Not Resolved]
  - Hypothyroidism [Not Recovered/Not Resolved]
  - Cystitis [Not Recovered/Not Resolved]
  - Haematuria [Not Recovered/Not Resolved]
  - Bacterial vaginosis [Recovered/Resolved]
  - Acute sinusitis [Recovered/Resolved]
  - Nausea [Unknown]
  - Vomiting [Unknown]

NARRATIVE: CASE EVENT DATE: 20140904
